FAERS Safety Report 9247910 (Version 2)
Quarter: 2013Q2

REPORT INFORMATION
  Report Type: Spontaneous
  Country: US (occurrence: US)
  Receive Date: 20130423
  Receipt Date: 20130423
  Transmission Date: 20140414
  Serious: No
  Sender: FDA-Public Use
  Company Number: US-MYLANLABS-2012S1016586

PATIENT
  Age: 65 Year
  Sex: Male

DRUGS (4)
  1. IPRATROPIUM BROMIDE AND ALBUTEROL SULFATE INHALATION SOLUTION [Suspect]
  2. VENTOLIN [Concomitant]
  3. PRIMIDONE [Concomitant]
     Indication: TREMOR
  4. BUSPIRONE [Concomitant]

REACTIONS (1)
  - Drug ineffective [Recovered/Resolved]
